FAERS Safety Report 15983219 (Version 1)
Quarter: 2019Q1

REPORT INFORMATION
  Report Type: Spontaneous
  Country: BY (occurrence: BY)
  Receive Date: 20190220
  Receipt Date: 20190220
  Transmission Date: 20190418
  Serious: Yes (Hospitalization, Other)
  Sender: FDA-Public Use
  Company Number: PHHY2019BY035638

PATIENT
  Age: 19 Year
  Sex: Male

DRUGS (3)
  1. AMOXICILLIN, CLAVULANATE [Suspect]
     Active Substance: AMOXICILLIN\CLAVULANATE POTASSIUM
     Indication: RESPIRATORY TRACT INFECTION
     Dosage: (AMOXICILLIN/CLAVUNATE, 500/125), BID
     Route: 065
  2. IBUPROFEN. [Suspect]
     Active Substance: IBUPROFEN
     Indication: RESPIRATORY TRACT INFECTION
     Dosage: 200 MG, QD
     Route: 065
  3. IBUPROFEN. [Suspect]
     Active Substance: IBUPROFEN
     Dosage: 1200 MG, QD
     Route: 065

REACTIONS (15)
  - Hepatosplenomegaly [Unknown]
  - Hepatic steatosis [Recovering/Resolving]
  - Hepatitis [Unknown]
  - Pruritus [Recovered/Resolved]
  - Blood bilirubin increased [Not Recovered/Not Resolved]
  - Asthenia [Not Recovered/Not Resolved]
  - Gamma-glutamyltransferase increased [Not Recovered/Not Resolved]
  - Lymphadenopathy [Recovering/Resolving]
  - Cholestatic liver injury [Unknown]
  - Scleral pigmentation [Recovering/Resolving]
  - Alanine aminotransferase increased [Not Recovered/Not Resolved]
  - Drug-induced liver injury [Unknown]
  - Jaundice [Recovered/Resolved]
  - Aspartate aminotransferase increased [Not Recovered/Not Resolved]
  - Serositis [Unknown]
